FAERS Safety Report 6517039-2 (Version None)
Quarter: 2009Q4

REPORT INFORMATION
  Report Type: 
  Country: None (occurrence: None)
  Receive Date: 20091223
  Receipt Date: 20091218
  Transmission Date: 20100525
  Serious: Yes (Other)
  Sender: FDA-Public Use
  Company Number: JP-NOVOPROD-302368

PATIENT
  Age: 39 Year
  Sex: Male
  Weight: 62.3 kg

DRUGS (1)
  1. NOVOLIN R [Suspect]
     Indication: TYPE 1 DIABETES MELLITUS

REACTIONS (2)
  - DIABETIC KETOACIDOSIS [None]
  - HEPATIC FUNCTION ABNORMAL [None]
